FAERS Safety Report 4462991-2 (Version None)
Quarter: 2004Q3

REPORT INFORMATION
  Report Type: 
  Country: None (occurrence: None)
  Receive Date: 20040930
  Receipt Date: 20040913
  Transmission Date: 20050211
  Serious: Yes (Other)
  Sender: FDA-Public Use
  Company Number: 200416952US

PATIENT
  Age: 40 Year
  Sex: Female

DRUGS (5)
  1. KETEK [Suspect]
     Indication: LYME DISEASE
     Dates: start: 20040909
  2. DILANTIN [Concomitant]
     Indication: CONVULSION
     Dosage: DOSE: UNK
     Dates: end: 20040909
  3. NEURONTIN [Concomitant]
     Indication: CONVULSION
     Dosage: DOSE: UNK
  4. VALIUM [Concomitant]
     Indication: CONVULSION
     Dosage: DOSE: UNK
  5. LEVOTHYROXINE SODIUM [Concomitant]
     Indication: HYPOTHYROIDISM
     Dosage: DOSE: UNK

REACTIONS (2)
  - CONVULSION [None]
  - DIARRHOEA [None]
